FAERS Safety Report 6850085-8 (Version None)
Quarter: 2010Q3

REPORT INFORMATION
  Report Type: 
  Country: None (occurrence: None)
  Receive Date: 20100716
  Receipt Date: 20080221
  Transmission Date: 20110219
  Serious: No
  Sender: FDA-Public Use
  Company Number: US-PFIZER INC-2007085111

PATIENT
  Sex: Male
  Weight: 92.5 kg

DRUGS (8)
  1. CHANTIX [Suspect]
     Indication: SMOKING CESSATION THERAPY
     Dates: start: 20061117, end: 20061219
  2. NIACIN [Suspect]
     Indication: DYSLIPIDAEMIA
     Dosage: 3 EVERY 1 WEEKS
  3. ACETYLSALICYLIC ACID [Concomitant]
  4. TRICOR [Concomitant]
  5. ZOCOR [Concomitant]
  6. LEXAPRO [Concomitant]
  7. DICLOFENAC [Concomitant]
  8. VYTORIN [Concomitant]
     Dosage: TDD 10/40MG

REACTIONS (1)
  - URTICARIA [None]
